FAERS Safety Report 24595099 (Version 2)
Quarter: 2024Q4

REPORT INFORMATION
  Report Type: Spontaneous
  Country: MX (occurrence: MX)
  Receive Date: 20241108
  Receipt Date: 20241112
  Transmission Date: 20250115
  Serious: Yes (Other)
  Sender: MERCK
  Company Number: MX-009507513-2411MEX000689

PATIENT
  Age: 69 Year
  Sex: Male

DRUGS (1)
  1. ERTAPENEM SODIUM [Suspect]
     Active Substance: ERTAPENEM SODIUM
     Indication: Pneumonia klebsiella
     Dosage: 1 GRAM

REACTIONS (1)
  - Neurotoxicity [Unknown]
